FAERS Safety Report 20208168 (Version 2)
Quarter: 2022Q1

REPORT INFORMATION
  Report Type: Spontaneous
  Country: DE (occurrence: DE)
  Receive Date: 20211220
  Receipt Date: 20220105
  Transmission Date: 20220423
  Serious: Yes (Hospitalization)
  Sender: FDA-Public Use
  Company Number: DE-LUPIN PHARMACEUTICALS INC.-2021-24983

PATIENT
  Age: 75 Year
  Sex: Male

DRUGS (3)
  1. TRIAMCINOLONE [Suspect]
     Active Substance: TRIAMCINOLONE
     Indication: Back pain
     Dosage: UNK LOSS OF RESISTANCE TECHNIQUE
     Route: 037
  2. ROPIVACAINE [Suspect]
     Active Substance: ROPIVACAINE
     Indication: Back pain
     Dosage: 4 MILLILITER 10 MG/ML) WAS DILUTED IN THE 20ML SODIUM CHLORIDE
     Route: 037
  3. SODIUM CHLORIDE [Suspect]
     Active Substance: SODIUM CHLORIDE
     Indication: Vehicle solution use
     Dosage: 20 MILLILITER
     Route: 037

REACTIONS (1)
  - Incorrect route of product administration [Unknown]
